FAERS Safety Report 9315221 (Version 2)
Quarter: 2013Q2

REPORT INFORMATION
  Report Type: Report from Study
  Country: BG (occurrence: BG)
  Receive Date: 20130529
  Receipt Date: 20130610
  Transmission Date: 20140414
  Serious: Yes (Hospitalization)
  Sender: FDA-Public Use
  Company Number: BG-JNJFOC-20130513590

PATIENT
  Age: 44 Year
  Sex: Male
  Weight: 90 kg

DRUGS (14)
  1. PALIPERIDONE PALMITATE [Suspect]
     Indication: SCHIZOPHRENIA
     Route: 030
     Dates: start: 20130410, end: 20130515
  2. PALIPERIDONE PALMITATE [Suspect]
     Indication: SCHIZOPHRENIA
     Route: 030
  3. PALIPERIDONE [Concomitant]
     Indication: SCHIZOPHRENIA
     Route: 048
     Dates: start: 20130315, end: 20130408
  4. PALIPERIDONE [Concomitant]
     Indication: SCHIZOPHRENIA
     Route: 048
     Dates: start: 20130222, end: 20130314
  5. PALIPERIDONE [Concomitant]
     Indication: SCHIZOPHRENIA
     Route: 048
     Dates: start: 20130208, end: 20130221
  6. HALOPERIDOL [Concomitant]
     Indication: SCHIZOPHRENIA
     Route: 048
     Dates: start: 20130315, end: 20130406
  7. HALOPERIDOL [Concomitant]
     Indication: SCHIZOPHRENIA
     Route: 048
     Dates: start: 20130407, end: 20130407
  8. BIPERIDEN [Concomitant]
     Indication: MUSCLE RIGIDITY
     Route: 048
     Dates: start: 20130315, end: 20130407
  9. PROMETHAZINE [Concomitant]
     Indication: AGITATION
     Route: 048
     Dates: start: 20130315, end: 20130407
  10. PROMETHAZINE [Concomitant]
     Indication: MUSCLE RIGIDITY
     Route: 048
     Dates: start: 20130315, end: 20130407
  11. PROMETHAZINE [Concomitant]
     Indication: SCHIZOPHRENIA
     Route: 048
     Dates: start: 20130315, end: 20130407
  12. CINOLAZEPAM [Concomitant]
     Indication: INSOMNIA
     Route: 048
     Dates: start: 20130315, end: 20130401
  13. DIAZEPAM [Concomitant]
     Indication: AGITATION
     Route: 048
     Dates: start: 20130315, end: 20130519
  14. DIAZEPAM [Concomitant]
     Indication: AGITATION
     Route: 048
     Dates: start: 20130315

REACTIONS (1)
  - Schizophrenia [Not Recovered/Not Resolved]
